FAERS Safety Report 9689839 (Version 2)
Quarter: 2013Q4

REPORT INFORMATION
  Report Type: Spontaneous
  Country: US (occurrence: US)
  Receive Date: 20131115
  Receipt Date: 20131218
  Transmission Date: 20140711
  Serious: No
  Sender: FDA-Public Use
  Company Number: US-009507513-1311USA005323

PATIENT
  Age: 30 Year
  Sex: Female
  Weight: 83.9 kg

DRUGS (1)
  1. NEXPLANON [Suspect]
     Indication: CONTRACEPTION
     Dosage: 3 YEAR IMPLANT, IN LEFT ARM
     Route: 059
     Dates: start: 20131029

REACTIONS (2)
  - Mood swings [Unknown]
  - Weight increased [Unknown]
